FAERS Safety Report 7351950-8 (Version None)
Quarter: 2011Q1

REPORT INFORMATION
  Report Type: 
  Country: None (occurrence: None)
  Receive Date: 20110310
  Receipt Date: 20110310
  Transmission Date: 20110831
  Serious: Yes (Life-Threatening, Other)
  Sender: FDA-Public Use
  Company Number: None

PATIENT
  Age: 38 Year
  Sex: Female
  Weight: 122.4712 kg

DRUGS (2)
  1. RISPERDAL [Suspect]
     Indication: BIPOLAR DISORDER
     Dates: start: 19970101
  2. RISPERDAL [Suspect]
     Indication: POST-TRAUMATIC STRESS DISORDER
     Dates: start: 19970101

REACTIONS (1)
  - ASTHMA [None]
